FAERS Safety Report 4471645-8 (Version None)
Quarter: 2004Q4

REPORT INFORMATION
  Report Type: 
  Country: None (occurrence: None)
  Receive Date: 20041012
  Receipt Date: 20041006
  Transmission Date: 20050328
  Serious: Yes (Death, Other)
  Sender: FDA-Public Use
  Company Number: 200417713US

PATIENT
  Age: 78 Year
  Sex: Male

DRUGS (3)
  1. LOVENOX [Suspect]
     Indication: ATRIAL FIBRILLATION
     Route: 058
     Dates: start: 20040108, end: 20040115
  2. COUMADIN [Concomitant]
     Dosage: DOSE: 1-2
  3. HEPARIN [Concomitant]
     Dosage: DOSE: UNK

REACTIONS (2)
  - RENAL FAILURE [None]
  - RETROPERITONEAL HAEMORRHAGE [None]
